FAERS Safety Report 10469294 (Version 1)
Quarter: 2014Q3

REPORT INFORMATION
  Report Type: Spontaneous
  Country: US (occurrence: None)
  Receive Date: 20140922
  Receipt Date: 20140922
  Transmission Date: 20150326
  Serious: Yes (Life-Threatening)
  Sender: FDA-Public Use
  Company Number: None

PATIENT
  Age: 38 Year
  Sex: Female
  Weight: 65.77 kg

DRUGS (2)
  1. DEXAMETHASONE. [Suspect]
     Active Substance: DEXAMETHASONE
     Indication: MIGRAINE PROPHYLAXIS
     Dosage: 24 MG, ONCE, INTO A VEIN
     Dates: start: 20020811, end: 20020811
  2. DEXAMETHASONE. [Suspect]
     Active Substance: DEXAMETHASONE
     Dosage: 24 MG, ONCE, INTO A VEIN
     Dates: start: 20020811, end: 20020811

REACTIONS (4)
  - Dizziness [None]
  - Nasopharyngitis [None]
  - Blood pressure decreased [None]
  - Abdominal pain lower [None]

NARRATIVE: CASE EVENT DATE: 20020811
